FAERS Safety Report 7369030-4 (Version None)
Quarter: 2011Q1

REPORT INFORMATION
  Report Type: 
  Country: None (occurrence: None)
  Receive Date: 20110323
  Receipt Date: 20110318
  Transmission Date: 20110831
  Serious: Yes (Hospitalization, Other)
  Sender: FDA-Public Use
  Company Number: FR-PFIZER INC-2011059658

PATIENT
  Age: 82 Year
  Sex: Male

DRUGS (10)
  1. COVERSYL [Suspect]
     Dosage: 5 MG, 2X/DAY
     Route: 048
  2. DIFFU K [Concomitant]
  3. OMIX [Concomitant]
  4. AVODART [Concomitant]
  5. PREVISCAN [Concomitant]
  6. NEXIUM [Concomitant]
     Dosage: 20 MG
  7. KLIPAL [Suspect]
     Dosage: 600/50 MG
     Dates: end: 20100701
  8. ALDACTONE [Suspect]
     Dosage: 25 MG, 1X/DAY
     Route: 048
  9. ALLOPURINOL [Concomitant]
  10. LASIX [Suspect]
     Dosage: 1 TO 2 TABLETS/DAY
     Route: 048

REACTIONS (7)
  - MIOSIS [None]
  - RESPIRATORY DISTRESS [None]
  - OVERDOSE [None]
  - ACIDOSIS [None]
  - COMA [None]
  - RASH [None]
  - RENAL FAILURE ACUTE [None]
